FAERS Safety Report 4320834-1 (Version None)
Quarter: 2004Q1

REPORT INFORMATION
  Report Type: 
  Country: None (occurrence: None)
  Receive Date: 20040315
  Receipt Date: 20030616
  Transmission Date: 20041129
  Serious: Yes (Hospitalization)
  Sender: FDA-Public Use
  Company Number: PHEH2003US03341

PATIENT
  Sex: Male

DRUGS (5)
  1. TRILEPTAL [Suspect]
     Indication: NEUROPATHY
     Dosage: 600 MG, QD, ORAL
     Route: 048
     Dates: start: 20021201, end: 20030401
  2. PRINCIPEN (AMPICILLIN) [Concomitant]
  3. TOPROL XL (METOPROL SUCCINATE) [Concomitant]
  4. FLEXERIL [Concomitant]
  5. TETANUS TOXOID (TETANUS TOXOID) [Concomitant]

REACTIONS (9)
  - CONVULSION [None]
  - DEPRESSED LEVEL OF CONSCIOUSNESS [None]
  - DIZZINESS [None]
  - DYSSTASIA [None]
  - FATIGUE [None]
  - HYPERTENSION [None]
  - PALPITATIONS [None]
  - PARAESTHESIA [None]
  - TINNITUS [None]
